FAERS Safety Report 17843981 (Version 1)
Quarter: 2020Q2

REPORT INFORMATION
  Report Type: Spontaneous
  Country: US (occurrence: US)
  Receive Date: 20200601
  Receipt Date: 20200601
  Transmission Date: 20200714
  Serious: Yes (Life-Threatening, Other)
  Sender: FDA-Public Use
  Company Number: US-STRIDES ARCOLAB LIMITED-2019SP011091

PATIENT
  Sex: Male

DRUGS (4)
  1. DIPHENHYDRAMINE. [Concomitant]
     Active Substance: DIPHENHYDRAMINE
     Indication: ALLERGY PROPHYLAXIS
     Dosage: UNK
     Route: 065
  2. VANCOMYCIN [Suspect]
     Active Substance: VANCOMYCIN
     Dosage: 250 MILLIGRAM, BID
  3. VANCOMYCIN [Suspect]
     Active Substance: VANCOMYCIN
     Indication: STAPHYLOCOCCAL INFECTION
     Dosage: UNK
     Route: 065
  4. VANCOMYCIN [Suspect]
     Active Substance: VANCOMYCIN
     Dosage: 0.025 MILLIGRAM, INCREASING EVERY 15 MINUTES

REACTIONS (5)
  - Type I hypersensitivity [Unknown]
  - Pruritus [Unknown]
  - Dyspnoea [Unknown]
  - Angioedema [Unknown]
  - Oropharyngeal oedema [Unknown]
